FAERS Safety Report 8541085-0 (Version None)
Quarter: 2012Q3

REPORT INFORMATION
  Report Type: 
  Country: None (occurrence: None)
  Receive Date: 20120726
  Receipt Date: 20110819
  Transmission Date: 20120928
  Serious: No
  Sender: FDA-Public Use
  Company Number: US-ASTRAZENECA-2011SE50262

PATIENT
  Age: 17 Year
  Sex: Male

DRUGS (2)
  1. SEROQUEL [Suspect]
     Indication: AUTISM
     Route: 048
  2. SEROQUEL [Suspect]
     Route: 048

REACTIONS (3)
  - INSOMNIA [None]
  - DRUG DOSE OMISSION [None]
  - OFF LABEL USE [None]
